FAERS Safety Report 10931640 (Version 1)
Quarter: 2015Q1

REPORT INFORMATION
  Report Type: Spontaneous
  Country: US (occurrence: US)
  Receive Date: 20150319
  Receipt Date: 20150319
  Transmission Date: 20150721
  Serious: No
  Sender: FDA-Public Use
  Company Number: US-BAUSCH-SYM-2014-20184

PATIENT
  Age: 70 Year
  Sex: Male

DRUGS (1)
  1. RENOVA [Suspect]
     Active Substance: TRETINOIN
     Indication: SKIN WRINKLING
     Route: 061

REACTIONS (3)
  - Expired product administered [Unknown]
  - Application site pain [Recovered/Resolved]
  - Application site warmth [Recovered/Resolved]
